FAERS Safety Report 7730240-5 (Version None)
Quarter: 2011Q3

REPORT INFORMATION
  Report Type: 
  Country: None (occurrence: None)
  Receive Date: 20110906
  Receipt Date: 20110831
  Transmission Date: 20111222
  Serious: Yes (Hospitalization)
  Sender: FDA-Public Use
  Company Number: US-ROCHE-800428

PATIENT
  Age: 62 Year
  Sex: Female
  Weight: 77 kg

DRUGS (3)
  1. CARBOPLATIN [Suspect]
     Indication: ENDOMETRIAL CANCER
     Dosage: AUC = 6 IV OVER 30 MINUTES ON DAY 1 X 6 CYCLES
     Route: 042
     Dates: start: 20110621
  2. BEVACIZUMAB [Suspect]
     Indication: ENDOMETRIAL CANCER
     Dosage: OVER 30-90 MINUTES ON DAY 1
     Route: 042
     Dates: start: 20110621
  3. PACLITAXEL [Suspect]
     Indication: ENDOMETRIAL CANCER
     Dosage: OVER 3 HRS ON DAY 1 X 6 CYCLES
     Route: 042
     Dates: start: 20110621

REACTIONS (1)
  - DYSPHAGIA [None]
